FAERS Safety Report 16400699 (Version 2)
Quarter: 2019Q4

REPORT INFORMATION
  Report Type: Report from Study
  Country: US (occurrence: US)
  Receive Date: 20190606
  Receipt Date: 20191114
  Transmission Date: 20200122
  Serious: Yes (Other)
  Sender: FDA-Public Use
  Company Number: US-SHIRE-US201917270

PATIENT
  Sex: Female

DRUGS (2)
  1. LIALDA [Suspect]
     Active Substance: MESALAMINE
     Dosage: 4 DOSAGE FORM, 1X/DAY:QD
     Route: 048
  2. LIALDA [Suspect]
     Active Substance: MESALAMINE
     Indication: PRODUCT USED FOR UNKNOWN INDICATION
     Dosage: 4 (UNITS UNKNOWN), 1X/DAY:QD
     Route: 048

REACTIONS (8)
  - Secretion discharge [Unknown]
  - Therapy cessation [Unknown]
  - Colitis ulcerative [Unknown]
  - Bloody discharge [Unknown]
  - Feeling abnormal [Unknown]
  - Haemorrhage [Unknown]
  - Product dose omission [Unknown]
  - Disease progression [Not Recovered/Not Resolved]
